FAERS Safety Report 6608460-2 (Version None)
Quarter: 2010Q1

REPORT INFORMATION
  Report Type: 
  Country: None (occurrence: None)
  Receive Date: 20100222
  Receipt Date: 20100204
  Transmission Date: 20100710
  Serious: Yes (Hospitalization)
  Sender: FDA-Public Use
  Company Number: A-US2010-33792

PATIENT
  Age: 70 Year
  Sex: Female

DRUGS (4)
  1. VENTAVIS [Suspect]
     Indication: PULMONARY ARTERIAL HYPERTENSION
     Dosage: 10 MCG SOLUTION, RESPIRATORY
     Route: 055
     Dates: start: 20090821
  2. REVATIO [Concomitant]
  3. METOLAZONE [Concomitant]
  4. LASIX [Concomitant]

REACTIONS (2)
  - OEDEMA PERIPHERAL [None]
  - PULMONARY OEDEMA [None]
